FAERS Safety Report 5896164-3 (Version None)
Quarter: 2008Q3

REPORT INFORMATION
  Report Type: 
  Country: None (occurrence: None)
  Receive Date: 20080924
  Receipt Date: 20080617
  Transmission Date: 20090109
  Serious: Yes (Other)
  Sender: FDA-Public Use
  Company Number: US-ASTRAZENECA-2007UW10956

PATIENT
  Age: 12660 Day
  Sex: Male
  Weight: 95.3 kg

DRUGS (8)
  1. SEROQUEL [Suspect]
     Indication: SCHIZOPHRENIA
     Route: 048
     Dates: start: 19940101, end: 20071101
  2. SEROQUEL [Suspect]
     Indication: DEPRESSION
     Route: 048
     Dates: start: 19940101, end: 20071101
  3. ZYPREXA [Concomitant]
     Dates: start: 20080101, end: 20080201
  4. ABILIFY [Concomitant]
     Dates: start: 20060601, end: 20060801
  5. GEODON [Concomitant]
     Dates: start: 19920601, end: 19970801
  6. HALDOL [Concomitant]
  7. NAVANE [Concomitant]
     Dates: start: 19910101, end: 19920101
  8. THORAZINE [Concomitant]
     Dates: start: 19920101

REACTIONS (3)
  - BACK DISORDER [None]
  - HYPERGLYCAEMIA [None]
  - PANCREATITIS [None]
